FAERS Safety Report 9353556 (Version 2)
Quarter: 2013Q4

REPORT INFORMATION
  Report Type: Spontaneous
  Country: US (occurrence: US)
  Receive Date: 20130618
  Receipt Date: 20131205
  Transmission Date: 20140711
  Serious: Yes (Hospitalization)
  Sender: FDA-Public Use
  Company Number: US-BAYER-2013-072637

PATIENT
  Age: 38 Year
  Sex: Female
  Weight: 70.3 kg

DRUGS (1)
  1. MIRENA [Suspect]
     Indication: CONTRACEPTION
     Dosage: 20 MCG/24HR, CONT
     Route: 015
     Dates: start: 200711, end: 20110414

REACTIONS (5)
  - Uterine perforation [None]
  - Pain [None]
  - Device difficult to use [None]
  - Menorrhagia [None]
  - Device issue [None]
